FAERS Safety Report 20459451 (Version 7)
Quarter: 2022Q3

REPORT INFORMATION
  Report Type: Spontaneous
  Country: DE (occurrence: DE)
  Receive Date: 20220211
  Receipt Date: 20220824
  Transmission Date: 20221026
  Serious: Yes (Hospitalization)
  Sender: FDA-Public Use
  Company Number: DE-ADRED-00034-01

PATIENT
  Age: 62 Year
  Sex: Female
  Weight: 45 kg

DRUGS (336)
  1. SIMVASTATIN [Interacting]
     Active Substance: SIMVASTATIN
     Indication: Product used for unknown indication
     Dosage: 40 MG, QD (0-0-1-0)
     Route: 048
  2. SIMVASTATIN [Interacting]
     Active Substance: SIMVASTATIN
     Dosage: 40 MG, QD (0-0-1-0)
     Route: 048
  3. SIMVASTATIN [Interacting]
     Active Substance: SIMVASTATIN
     Dosage: 40 MG, QD (0-0-1-0)
     Route: 048
  4. SIMVASTATIN [Interacting]
     Active Substance: SIMVASTATIN
     Dosage: 40 MG, QD (0-0-1-0)
     Route: 048
  5. SIMVASTATIN [Interacting]
     Active Substance: SIMVASTATIN
     Dosage: 40 MG, QD (0-0-1-0)
     Route: 048
  6. SIMVASTATIN [Interacting]
     Active Substance: SIMVASTATIN
     Dosage: 40 MG, QD
     Route: 048
  7. SIMVASTATIN [Interacting]
     Active Substance: SIMVASTATIN
     Dosage: 40 MG, QD (0-0-1-0); 40.0 MILLIGRAM(S) (40 MILLIGRAM(S)),1 IN 1 DAY
     Route: 048
  8. EZETIMIBE [Suspect]
     Active Substance: EZETIMIBE
     Indication: Product used for unknown indication
     Dosage: 10 MG, QD (1-0-0-0)
     Route: 048
  9. EZETIMIBE [Suspect]
     Active Substance: EZETIMIBE
     Indication: Product used for unknown indication
     Dosage: 10 MG, QD
     Route: 048
  10. EZETIMIBE [Suspect]
     Active Substance: EZETIMIBE
     Dosage: 10 MG, QD
     Route: 048
  11. EZETIMIBE [Suspect]
     Active Substance: EZETIMIBE
     Dosage: 10 MG, QD
     Route: 048
  12. EZETIMIBE [Suspect]
     Active Substance: EZETIMIBE
     Dosage: 10 MG, QD
     Route: 048
  13. EZETIMIBE [Suspect]
     Active Substance: EZETIMIBE
     Dosage: 10 MG, QD
     Route: 048
  14. EZETIMIBE [Suspect]
     Active Substance: EZETIMIBE
     Dosage: UNK
     Route: 048
  15. RAPAMUNE [Suspect]
     Active Substance: SIROLIMUS
     Indication: Product used for unknown indication
     Dosage: 1 MG,QD, (1-0-0-0)
     Route: 048
  16. RAPAMUNE [Suspect]
     Active Substance: SIROLIMUS
     Dosage: UNK UNK,UNK
     Route: 048
  17. RAPAMUNE [Suspect]
     Active Substance: SIROLIMUS
     Dosage: UNK UNK,UNK
     Route: 048
  18. RAPAMUNE [Suspect]
     Active Substance: SIROLIMUS
     Dosage: 1 MG,QD, (1-0-0-0)
     Route: 048
  19. RAPAMUNE [Suspect]
     Active Substance: SIROLIMUS
     Dosage: 1 MG,QD, (1-0-0-0)
     Route: 048
  20. RAPAMUNE [Suspect]
     Active Substance: SIROLIMUS
     Dosage: 1 MG,QD, (1-0-0-0)
     Route: 048
  21. RAPAMUNE [Suspect]
     Active Substance: SIROLIMUS
     Dosage: UNK UNK,UNK
     Route: 048
  22. RAPAMUNE [Suspect]
     Active Substance: SIROLIMUS
     Dosage: 1 MG,QD, (1-0-0-0)
     Route: 048
  23. RAPAMUNE [Suspect]
     Active Substance: SIROLIMUS
     Dosage: 1 MG,QD, (1-0-0-0)
     Route: 048
  24. RAPAMUNE [Suspect]
     Active Substance: SIROLIMUS
     Dosage: 1 MG, QD
  25. MAGNESIUM [Suspect]
     Active Substance: MAGNESIUM
     Dosage: UNK
     Route: 048
  26. ACETAMINOPHEN [Suspect]
     Active Substance: ACETAMINOPHEN
     Indication: Product used for unknown indication
     Dosage: 1.0 DOSAGE FORM (1 DOSAGE FORM),1 IN 1 DAY
     Route: 048
  27. ACETAMINOPHEN [Suspect]
     Active Substance: ACETAMINOPHEN
     Dosage: 3.0 DOSAGE FORM (1 DOSAGE FORM),1 IN 8 HOUR
     Route: 048
  28. ACETAMINOPHEN [Suspect]
     Active Substance: ACETAMINOPHEN
     Dosage: 30 GTT DROPS, TID
     Route: 048
  29. ACETAMINOPHEN [Suspect]
     Active Substance: ACETAMINOPHEN
     Dosage: 1 DF, QD
     Route: 048
  30. ACETAMINOPHEN [Suspect]
     Active Substance: ACETAMINOPHEN
     Dosage: 90 DF, QD
     Route: 048
  31. ACETAMINOPHEN [Suspect]
     Active Substance: ACETAMINOPHEN
     Dosage: 90.0 DOSAGE FORM (90 DOSAGE FORM),1 IN 1 DAY
     Route: 048
  32. ACETAMINOPHEN [Suspect]
     Active Substance: ACETAMINOPHEN
     Dosage: 90 DF, QD
     Route: 048
  33. LACTULOSE [Interacting]
     Active Substance: LACTULOSE
     Indication: Product used for unknown indication
     Dosage: 1 DF, QD
     Route: 048
  34. LACTULOSE [Interacting]
     Active Substance: LACTULOSE
     Dosage: 1 DF, QD
     Route: 048
  35. LACTULOSE [Interacting]
     Active Substance: LACTULOSE
     Dosage: 1 UNK, UNK
     Route: 048
  36. LACTULOSE [Interacting]
     Active Substance: LACTULOSE
     Dosage: 1 DF, QD, 1 MEASURING CUP
     Route: 048
  37. LACTULOSE [Interacting]
     Active Substance: LACTULOSE
     Dosage: 1 DF, QD, 1 MEASURING CUP
     Route: 048
  38. LACTULOSE [Interacting]
     Active Substance: LACTULOSE
     Dosage: 1 DF, QD
     Route: 048
  39. LACTULOSE [Interacting]
     Active Substance: LACTULOSE
     Dosage: 1 DF, QD
     Route: 048
  40. LACTULOSE [Interacting]
     Active Substance: LACTULOSE
     Dosage: 1 DF, QD
     Route: 048
  41. LACTULOSE [Interacting]
     Active Substance: LACTULOSE
     Dosage: 1 UNK, UNK
     Route: 048
  42. LACTULOSE [Interacting]
     Active Substance: LACTULOSE
     Dosage: 1 DF
     Route: 048
  43. LACTULOSE [Interacting]
     Active Substance: LACTULOSE
     Dosage: UNK
     Route: 048
  44. CHOLECALCIFEROL [Suspect]
     Active Substance: CHOLECALCIFEROL
     Indication: Product used for unknown indication
     Dosage: 1 DF, QD
     Route: 048
  45. CHOLECALCIFEROL [Suspect]
     Active Substance: CHOLECALCIFEROL
     Dosage: 100 UNK, QD
     Route: 048
  46. CHOLECALCIFEROL [Suspect]
     Active Substance: CHOLECALCIFEROL
     Dosage: 100 IU, QD
     Route: 048
  47. CHOLECALCIFEROL [Suspect]
     Active Substance: CHOLECALCIFEROL
     Dosage: 1 DOSAGE FORM, QD (1 DF, QD )
     Route: 048
  48. CHOLECALCIFEROL [Suspect]
     Active Substance: CHOLECALCIFEROL
     Dosage: 100 IU, QD
     Route: 048
  49. CHOLECALCIFEROL [Suspect]
     Active Substance: CHOLECALCIFEROL
     Dosage: 1 DOSAGE FORM, QD (1 DF, QD )
     Route: 048
  50. CHOLECALCIFEROL [Suspect]
     Active Substance: CHOLECALCIFEROL
     Dosage: 100 UNK, QD,100 OT, QD (100 IE, 1-0-0-0)
     Route: 048
  51. CHOLECALCIFEROL [Suspect]
     Active Substance: CHOLECALCIFEROL
     Dosage: 100 UNK, QD
     Route: 048
  52. CHOLECALCIFEROL [Suspect]
     Active Substance: CHOLECALCIFEROL
     Dosage: UNK
  53. FENTANYL [Suspect]
     Active Substance: FENTANYL
     Indication: Product used for unknown indication
     Dosage: 50 UG, QD
     Route: 048
  54. FENTANYL [Suspect]
     Active Substance: FENTANYL
     Dosage: 50 UG, QD
     Route: 048
  55. FENTANYL [Suspect]
     Active Substance: FENTANYL
     Dosage: UNK
  56. SIROLIMUS [Suspect]
     Active Substance: SIROLIMUS
     Indication: Product used for unknown indication
     Dosage: 1 MG, QD
     Route: 048
  57. SIROLIMUS [Suspect]
     Active Substance: SIROLIMUS
     Dosage: UNK
     Route: 048
  58. TIOTROPIUM BROMIDE [Suspect]
     Active Substance: TIOTROPIUM BROMIDE
     Indication: Product used for unknown indication
     Dosage: 2 DF, QD
     Route: 055
  59. TIOTROPIUM BROMIDE [Suspect]
     Active Substance: TIOTROPIUM BROMIDE
     Dosage: 36 MICROGRAM, QD
     Route: 055
  60. TIOTROPIUM BROMIDE [Suspect]
     Active Substance: TIOTROPIUM BROMIDE
     Dosage: 36 UG, BID
     Route: 055
  61. TIOTROPIUM BROMIDE [Suspect]
     Active Substance: TIOTROPIUM BROMIDE
     Dosage: 1 DF, QD
     Route: 055
  62. TIOTROPIUM BROMIDE [Suspect]
     Active Substance: TIOTROPIUM BROMIDE
     Dosage: 18 UG,BID
     Route: 055
  63. TIOTROPIUM BROMIDE [Suspect]
     Active Substance: TIOTROPIUM BROMIDE
     Dosage: 18 MICROGRAM, Q12H (18 UG,BID )
     Route: 055
  64. TIOTROPIUM BROMIDE [Suspect]
     Active Substance: TIOTROPIUM BROMIDE
     Dosage: 36 MICROGRAM, QD
     Route: 055
  65. TIOTROPIUM BROMIDE [Suspect]
     Active Substance: TIOTROPIUM BROMIDE
     Dosage: 18 MICROGRAM, Q12H (18 UG,BID )
     Route: 055
  66. TIOTROPIUM BROMIDE [Suspect]
     Active Substance: TIOTROPIUM BROMIDE
     Dosage: 36 UG, QD, 18 UG, BID (1-0-1-0)
     Route: 055
  67. TIOTROPIUM BROMIDE [Suspect]
     Active Substance: TIOTROPIUM BROMIDE
     Dosage: 36 UG, QD, 18 UG, BID (1-0-1-0)
     Route: 055
  68. TIOTROPIUM BROMIDE [Suspect]
     Active Substance: TIOTROPIUM BROMIDE
     Dosage: 36 UG, QD, 18 UG, BID (1-0-1-0)
     Route: 055
  69. TIOTROPIUM BROMIDE [Suspect]
     Active Substance: TIOTROPIUM BROMIDE
     Dosage: 36 UG, QD, 18 UG, BID (1-0-1-0)
     Route: 055
  70. TIOTROPIUM BROMIDE [Suspect]
     Active Substance: TIOTROPIUM BROMIDE
     Dosage: 36 UG, QD, 18 UG, BID (1-0-1-0)
     Route: 055
  71. TIOTROPIUM BROMIDE [Suspect]
     Active Substance: TIOTROPIUM BROMIDE
     Dosage: 18 MICROGRAM, Q12H (18 UG, BID)
     Route: 055
  72. TIOTROPIUM BROMIDE [Suspect]
     Active Substance: TIOTROPIUM BROMIDE
     Dosage: 36 MICROGRAM, BID
     Route: 055
  73. FUROSEMIDE [Interacting]
     Active Substance: FUROSEMIDE
     Indication: Product used for unknown indication
     Dosage: (40 MILLIGRAM(S)) IN 1 DAY
     Route: 048
  74. FUROSEMIDE [Interacting]
     Active Substance: FUROSEMIDE
     Dosage: (160 MILLIGRAM(S)) IN 1 DAY
     Route: 048
  75. FUROSEMIDE [Interacting]
     Active Substance: FUROSEMIDE
     Dosage: (160 MILLIGRAM(S)) IN 1 DAY
     Route: 048
  76. FUROSEMIDE [Interacting]
     Active Substance: FUROSEMIDE
     Dosage: 40 MG, QD
     Route: 048
  77. FUROSEMIDE [Interacting]
     Active Substance: FUROSEMIDE
     Dosage: 160 MG, QD
     Route: 048
  78. FUROSEMIDE [Interacting]
     Active Substance: FUROSEMIDE
     Dosage: 40 MG, Q6H
     Route: 048
  79. FUROSEMIDE [Interacting]
     Active Substance: FUROSEMIDE
     Dosage: 40 MG, QID
     Route: 048
  80. FUROSEMIDE [Interacting]
     Active Substance: FUROSEMIDE
     Dosage: 160 MG, QD
     Route: 048
  81. FUROSEMIDE [Interacting]
     Active Substance: FUROSEMIDE
     Dosage: 160 MG, QD
     Route: 048
  82. FUROSEMIDE [Interacting]
     Active Substance: FUROSEMIDE
     Dosage: 40 UNK
     Route: 048
  83. FUROSEMIDE [Interacting]
     Active Substance: FUROSEMIDE
     Dosage: 160.0 MILLIGRAM(S) (40 MILLIGRAM(S)),1 IN 6 HOUR
     Route: 048
  84. FUROSEMIDE [Interacting]
     Active Substance: FUROSEMIDE
     Dosage: 160.0 MILLIGRAM(S) (160 MILLIGRAM(S)),1 IN 1 DAY
     Route: 048
  85. FUROSEMIDE [Interacting]
     Active Substance: FUROSEMIDE
     Dosage: 40.0 MILLIGRAM(S) (40 MILLIGRAM(S)),1 IN 1 DAY
     Route: 048
  86. FUROSEMIDE [Interacting]
     Active Substance: FUROSEMIDE
     Dosage: UNK
     Route: 048
  87. HYDROCHLOROTHIAZIDE [Suspect]
     Active Substance: HYDROCHLOROTHIAZIDE
     Indication: Product used for unknown indication
     Dosage: 25 MG, QD
     Route: 048
  88. HYDROCHLOROTHIAZIDE [Suspect]
     Active Substance: HYDROCHLOROTHIAZIDE
     Dosage: 25 MG, QD (1-0-0-0)
     Route: 048
  89. MAGNESIUM CITRATE\MAGNESIUM OXIDE\PYRIDOXINE HYDROCHLORIDE [Suspect]
     Active Substance: MAGNESIUM CITRATE\MAGNESIUM OXIDE\PYRIDOXINE HYDROCHLORIDE
     Indication: Product used for unknown indication
     Dosage: 2 DF, QD
     Route: 048
  90. MAGNESIUM CITRATE\MAGNESIUM OXIDE\PYRIDOXINE HYDROCHLORIDE [Suspect]
     Active Substance: MAGNESIUM CITRATE\MAGNESIUM OXIDE\PYRIDOXINE HYDROCHLORIDE
     Indication: Product used for unknown indication
     Dosage: 1 DF, QD
     Route: 048
  91. MAGNESIUM CITRATE\MAGNESIUM OXIDE\PYRIDOXINE HYDROCHLORIDE [Suspect]
     Active Substance: MAGNESIUM CITRATE\MAGNESIUM OXIDE\PYRIDOXINE HYDROCHLORIDE
     Dosage: UNK UNK, BID
     Route: 048
  92. MAGNESIUM CITRATE\MAGNESIUM OXIDE\PYRIDOXINE HYDROCHLORIDE [Suspect]
     Active Substance: MAGNESIUM CITRATE\MAGNESIUM OXIDE\PYRIDOXINE HYDROCHLORIDE
     Dosage: 2DF, QD
     Route: 048
  93. MAGNESIUM CITRATE\MAGNESIUM OXIDE\PYRIDOXINE HYDROCHLORIDE [Suspect]
     Active Substance: MAGNESIUM CITRATE\MAGNESIUM OXIDE\PYRIDOXINE HYDROCHLORIDE
     Dosage: 2 DF, QD
     Route: 048
  94. MAGNESIUM CITRATE\MAGNESIUM OXIDE\PYRIDOXINE HYDROCHLORIDE [Suspect]
     Active Substance: MAGNESIUM CITRATE\MAGNESIUM OXIDE\PYRIDOXINE HYDROCHLORIDE
     Dosage: (1 DOSAGE FORM) IN 1 DAY
     Route: 048
  95. MAGNESIUM CITRATE\MAGNESIUM OXIDE\PYRIDOXINE HYDROCHLORIDE [Suspect]
     Active Substance: MAGNESIUM CITRATE\MAGNESIUM OXIDE\PYRIDOXINE HYDROCHLORIDE
     Dosage: IN 12 HOUR
     Route: 048
  96. MAGNESIUM CITRATE\MAGNESIUM OXIDE\PYRIDOXINE HYDROCHLORIDE [Suspect]
     Active Substance: MAGNESIUM CITRATE\MAGNESIUM OXIDE\PYRIDOXINE HYDROCHLORIDE
     Dosage: IN 12 HOUR
     Route: 048
  97. MAGNESIUM CITRATE\MAGNESIUM OXIDE\PYRIDOXINE HYDROCHLORIDE [Suspect]
     Active Substance: MAGNESIUM CITRATE\MAGNESIUM OXIDE\PYRIDOXINE HYDROCHLORIDE
     Dosage: 1 DOSAGE FORM) IN 1 DAY
     Route: 048
  98. MAGNESIUM CITRATE\MAGNESIUM OXIDE\PYRIDOXINE HYDROCHLORIDE [Suspect]
     Active Substance: MAGNESIUM CITRATE\MAGNESIUM OXIDE\PYRIDOXINE HYDROCHLORIDE
     Dosage: (2 DOSAGE FORM) IN 1 DAY
     Route: 048
  99. MAGNESIUM CITRATE\MAGNESIUM OXIDE\PYRIDOXINE HYDROCHLORIDE [Suspect]
     Active Substance: MAGNESIUM CITRATE\MAGNESIUM OXIDE\PYRIDOXINE HYDROCHLORIDE
     Dosage: (2 DOSAGE FORM) IN 1 DAY
     Route: 048
  100. MAGNESIUM CITRATE\MAGNESIUM OXIDE\PYRIDOXINE HYDROCHLORIDE [Suspect]
     Active Substance: MAGNESIUM CITRATE\MAGNESIUM OXIDE\PYRIDOXINE HYDROCHLORIDE
     Dosage: 2 DOSAGE FORM, QD
     Route: 048
  101. MAGNESIUM CITRATE\MAGNESIUM OXIDE\PYRIDOXINE HYDROCHLORIDE [Suspect]
     Active Substance: MAGNESIUM CITRATE\MAGNESIUM OXIDE\PYRIDOXINE HYDROCHLORIDE
     Dosage: 2 UNK, QD
     Route: 048
  102. MAGNESIUM CITRATE\MAGNESIUM OXIDE\PYRIDOXINE HYDROCHLORIDE [Suspect]
     Active Substance: MAGNESIUM CITRATE\MAGNESIUM OXIDE\PYRIDOXINE HYDROCHLORIDE
     Dosage: UNK
     Route: 048
  103. FLUTICASONE PROPIONATE\SALMETEROL XINAFOATE [Suspect]
     Active Substance: FLUTICASONE PROPIONATE\SALMETEROL XINAFOATE
     Indication: Product used for unknown indication
     Dosage: 1 DF, QD
     Route: 055
  104. FLUTICASONE PROPIONATE\SALMETEROL XINAFOATE [Suspect]
     Active Substance: FLUTICASONE PROPIONATE\SALMETEROL XINAFOATE
     Dosage: 2 DF, QD
     Route: 055
  105. FLUTICASONE PROPIONATE\SALMETEROL XINAFOATE [Suspect]
     Active Substance: FLUTICASONE PROPIONATE\SALMETEROL XINAFOATE
     Dosage: 2 DOSAGE FORM) IN 1 DAY
     Route: 055
  106. FLUTICASONE PROPIONATE\SALMETEROL XINAFOATE [Suspect]
     Active Substance: FLUTICASONE PROPIONATE\SALMETEROL XINAFOATE
     Dosage: 1 DOSAGE FORM) IN 1 DAY
     Route: 055
  107. FLUTICASONE PROPIONATE\SALMETEROL XINAFOATE [Suspect]
     Active Substance: FLUTICASONE PROPIONATE\SALMETEROL XINAFOATE
     Dosage: 2 DF, QD, 50/500 MICROGRAM
     Route: 055
  108. FLUTICASONE PROPIONATE\SALMETEROL XINAFOATE [Suspect]
     Active Substance: FLUTICASONE PROPIONATE\SALMETEROL XINAFOATE
     Dosage: UNK
     Route: 055
  109. FLUTICASONE PROPIONATE\SALMETEROL XINAFOATE [Suspect]
     Active Substance: FLUTICASONE PROPIONATE\SALMETEROL XINAFOATE
     Dosage: 2 UNK, UNK
     Route: 055
  110. ACETAMINOPHEN\PENTAZOCINE HYDROCHLORIDE [Suspect]
     Active Substance: ACETAMINOPHEN\PENTAZOCINE HYDROCHLORIDE
     Indication: Product used for unknown indication
     Dosage: 1.0 DOSAGE FORM (1 DOSAGE FORM),1 IN 1 DAY1
     Route: 048
  111. ACETAMINOPHEN\PENTAZOCINE HYDROCHLORIDE [Suspect]
     Active Substance: ACETAMINOPHEN\PENTAZOCINE HYDROCHLORIDE
     Dosage: 1 DOSAGE FORM) IN 1 DAY
     Route: 048
  112. ACETAMINOPHEN\PENTAZOCINE HYDROCHLORIDE [Suspect]
     Active Substance: ACETAMINOPHEN\PENTAZOCINE HYDROCHLORIDE
     Dosage: ,1 IN 8 HOUR
     Route: 048
  113. ACETAMINOPHEN\PENTAZOCINE HYDROCHLORIDE [Suspect]
     Active Substance: ACETAMINOPHEN\PENTAZOCINE HYDROCHLORIDE
     Dosage: 90 DOSAGE FORM, QD
     Route: 048
  114. ACETAMINOPHEN\PENTAZOCINE HYDROCHLORIDE [Suspect]
     Active Substance: ACETAMINOPHEN\PENTAZOCINE HYDROCHLORIDE
     Dosage: (90 DOSAGE FORM) IN 1 DAY
  115. ACETAMINOPHEN\PENTAZOCINE HYDROCHLORIDE [Suspect]
     Active Substance: ACETAMINOPHEN\PENTAZOCINE HYDROCHLORIDE
     Dosage: 90.0 DOSAGE FORM (90 DOSAGE FORM),1 IN 1 DAY
     Route: 048
  116. ACETAMINOPHEN\PENTAZOCINE HYDROCHLORIDE [Suspect]
     Active Substance: ACETAMINOPHEN\PENTAZOCINE HYDROCHLORIDE
     Dosage: (30 DROP(S)) IN 8 HOUR
     Route: 048
  117. ACETAMINOPHEN\PENTAZOCINE HYDROCHLORIDE [Suspect]
     Active Substance: ACETAMINOPHEN\PENTAZOCINE HYDROCHLORIDE
     Dosage: 1 DOSAGE FORM, QD
     Route: 048
  118. ACETAMINOPHEN\PENTAZOCINE HYDROCHLORIDE [Suspect]
     Active Substance: ACETAMINOPHEN\PENTAZOCINE HYDROCHLORIDE
     Dosage: 1 DOSAGE FORM, QD
     Route: 048
  119. ACETAMINOPHEN\PENTAZOCINE HYDROCHLORIDE [Suspect]
     Active Substance: ACETAMINOPHEN\PENTAZOCINE HYDROCHLORIDE
     Dosage: 30 GTT DROPS, TID
     Route: 048
  120. ACETAMINOPHEN\PENTAZOCINE HYDROCHLORIDE [Suspect]
     Active Substance: ACETAMINOPHEN\PENTAZOCINE HYDROCHLORIDE
     Dosage: 30 GTT DROPS, TID
     Route: 048
  121. ACETAMINOPHEN\PENTAZOCINE HYDROCHLORIDE [Suspect]
     Active Substance: ACETAMINOPHEN\PENTAZOCINE HYDROCHLORIDE
     Dosage: 30 GTT DROPS, Q8H
     Route: 048
  122. ACETAMINOPHEN\PENTAZOCINE HYDROCHLORIDE [Suspect]
     Active Substance: ACETAMINOPHEN\PENTAZOCINE HYDROCHLORIDE
     Dosage: 90 DOSAGE FORM, QD
     Route: 048
  123. ACETAMINOPHEN\PENTAZOCINE HYDROCHLORIDE [Suspect]
     Active Substance: ACETAMINOPHEN\PENTAZOCINE HYDROCHLORIDE
     Dosage: 90 DOSAGE FORM, QD
     Route: 048
  124. ACETAMINOPHEN\PENTAZOCINE HYDROCHLORIDE [Suspect]
     Active Substance: ACETAMINOPHEN\PENTAZOCINE HYDROCHLORIDE
     Dosage: 1 DF, QD
     Route: 048
  125. ACETAMINOPHEN\PENTAZOCINE HYDROCHLORIDE [Suspect]
     Active Substance: ACETAMINOPHEN\PENTAZOCINE HYDROCHLORIDE
     Dosage: 90 DF QD
     Route: 048
  126. ACETAMINOPHEN\PENTAZOCINE HYDROCHLORIDE [Suspect]
     Active Substance: ACETAMINOPHEN\PENTAZOCINE HYDROCHLORIDE
     Dosage: UNK
     Route: 048
  127. AMBROXOL HYDROCHLORIDE [Interacting]
     Active Substance: AMBROXOL HYDROCHLORIDE
     Indication: Product used for unknown indication
     Dosage: 30 GTT DROPS, PRN ; AS NECESSARY
     Route: 048
  128. AMBROXOL HYDROCHLORIDE [Interacting]
     Active Substance: AMBROXOL HYDROCHLORIDE
     Dosage: UNK (REQUIREMENT, AS NECESSARY) (UNK [30 DROP (1/12 MILILITER) UNK)
     Route: 048
  129. AMBROXOL HYDROCHLORIDE [Interacting]
     Active Substance: AMBROXOL HYDROCHLORIDE
     Dosage: 30 GTT DROPS, PRN ; AS NECESSARY
     Route: 048
  130. AMBROXOL HYDROCHLORIDE [Interacting]
     Active Substance: AMBROXOL HYDROCHLORIDE
     Dosage: 30 GTT DROPS, PRN ; AS NECESSARY
     Route: 048
  131. AMBROXOL HYDROCHLORIDE [Interacting]
     Active Substance: AMBROXOL HYDROCHLORIDE
     Dosage: 30 GTT DROPS, PRN ; AS NECESSARY
     Route: 048
  132. AMBROXOL HYDROCHLORIDE [Interacting]
     Active Substance: AMBROXOL HYDROCHLORIDE
     Dosage: 30 DF, PRN
  133. BENSERAZIDE HYDROCHLORIDE [Suspect]
     Active Substance: BENSERAZIDE HYDROCHLORIDE
     Indication: Product used for unknown indication
     Dosage: 100 MG, BID
     Route: 048
  134. BENSERAZIDE HYDROCHLORIDE [Suspect]
     Active Substance: BENSERAZIDE HYDROCHLORIDE
     Dosage: 200.0 MILLIGRAM(S) (100 MILLIGRAM(S)),1 IN 12 HOUR
     Route: 048
  135. BENSERAZIDE HYDROCHLORIDE [Suspect]
     Active Substance: BENSERAZIDE HYDROCHLORIDE
     Dosage: 100 MILLIGRAM(S)) IN 12 HOUR
     Route: 048
  136. BENSERAZIDE HYDROCHLORIDE [Suspect]
     Active Substance: BENSERAZIDE HYDROCHLORIDE
     Dosage: (100 MILLIGRAM(S))
     Route: 048
  137. BENSERAZIDE HYDROCHLORIDE [Suspect]
     Active Substance: BENSERAZIDE HYDROCHLORIDE
     Dosage: (100 MILLIGRAM(S)) IN 12 HOUR
     Route: 048
  138. BENSERAZIDE HYDROCHLORIDE [Suspect]
     Active Substance: BENSERAZIDE HYDROCHLORIDE
     Dosage: (100 MILLIGRAM(S)) IN 12 HOUR
     Route: 048
  139. BENSERAZIDE HYDROCHLORIDE [Suspect]
     Active Substance: BENSERAZIDE HYDROCHLORIDE
     Dosage: 100 MILLIGRAM, Q12H, UNK (1-0-2.5-0) (100 MG)
     Route: 048
  140. BENSERAZIDE HYDROCHLORIDE [Suspect]
     Active Substance: BENSERAZIDE HYDROCHLORIDE
     Dosage: 100 MG, UNK (1-0-2.5-0) (100 MG)
     Route: 048
  141. BENSERAZIDE HYDROCHLORIDE [Suspect]
     Active Substance: BENSERAZIDE HYDROCHLORIDE
     Dosage: UNK
     Route: 048
  142. ACETAMINOPHEN\CAFFEINE\PHENYLEPHRINE HYDROCHLORIDE [Suspect]
     Active Substance: ACETAMINOPHEN\CAFFEINE\PHENYLEPHRINE HYDROCHLORIDE
     Indication: Product used for unknown indication
     Dosage: 30 DROP(S)) IN 8 HOUR
     Route: 048
  143. ACETAMINOPHEN\CAFFEINE\PHENYLEPHRINE HYDROCHLORIDE [Suspect]
     Active Substance: ACETAMINOPHEN\CAFFEINE\PHENYLEPHRINE HYDROCHLORIDE
     Indication: Product used for unknown indication
     Dosage: 30 GTT DROPS, TID
     Route: 048
  144. ACETAMINOPHEN\CAFFEINE\PHENYLEPHRINE HYDROCHLORIDE [Suspect]
     Active Substance: ACETAMINOPHEN\CAFFEINE\PHENYLEPHRINE HYDROCHLORIDE
     Dosage: 30 GTT DROPS, Q8H
     Route: 048
  145. ACETAMINOPHEN\CAFFEINE\PHENYLEPHRINE HYDROCHLORIDE [Suspect]
     Active Substance: ACETAMINOPHEN\CAFFEINE\PHENYLEPHRINE HYDROCHLORIDE
     Dosage: 1 IN 8 HOUR
     Route: 048
  146. ACETAMINOPHEN\CAFFEINE\PHENYLEPHRINE HYDROCHLORIDE [Suspect]
     Active Substance: ACETAMINOPHEN\CAFFEINE\PHENYLEPHRINE HYDROCHLORIDE
     Dosage: UNK
     Route: 048
  147. METAMIZOLE SODIUM [Suspect]
     Active Substance: METAMIZOLE SODIUM
     Indication: Product used for unknown indication
     Dosage: 90.0 DROP(S) (30 DROP(S)),1 IN 8 HOUR
     Route: 048
  148. METAMIZOLE SODIUM [Suspect]
     Active Substance: METAMIZOLE SODIUM
     Indication: Product used for unknown indication
     Dosage: 30 GTT DROPS, TID
     Route: 048
  149. METAMIZOLE SODIUM [Suspect]
     Active Substance: METAMIZOLE SODIUM
     Dosage: UNK
     Route: 048
  150. MAGNESIUM [Suspect]
     Active Substance: MAGNESIUM
     Indication: Product used for unknown indication
     Dosage: 2 DF, QD (2-0-0-0)
     Route: 048
  151. MAGNESIUM [Suspect]
     Active Substance: MAGNESIUM
     Dosage: 1 DF, QD
     Route: 048
  152. MAGNESIUM [Suspect]
     Active Substance: MAGNESIUM
     Dosage: UNK UNK, BID
     Route: 048
  153. MAGNESIUM [Suspect]
     Active Substance: MAGNESIUM
     Dosage: 2 DF, QD
     Route: 048
  154. MAGNESIUM [Suspect]
     Active Substance: MAGNESIUM
     Dosage: 2 DF, QD
     Route: 048
  155. MAGNESIUM [Suspect]
     Active Substance: MAGNESIUM
     Dosage: 2 DF, QD
     Route: 048
  156. MAGNESIUM [Suspect]
     Active Substance: MAGNESIUM
     Dosage: 1 DOSAGE FORM) IN 1 DAY
     Route: 048
  157. MAGNESIUM [Suspect]
     Active Substance: MAGNESIUM
     Dosage: (2 DOSAGE FORM) IN 1 DAY
     Route: 048
  158. MAGNESIUM [Suspect]
     Active Substance: MAGNESIUM
     Dosage: UNK, Q12H (IN 12 HOUR)
     Route: 048
  159. MAGNESIUM [Suspect]
     Active Substance: MAGNESIUM
     Dosage: UNK UNK, Q12H (IN 12 HOUR)
     Route: 048
  160. ACETAMINOPHEN\CAFFEINE\PROPYPHENAZONE [Suspect]
     Active Substance: ACETAMINOPHEN\CAFFEINE\PROPYPHENAZONE
     Indication: Product used for unknown indication
     Dosage: 30 GTT DROPS, Q8H
     Route: 048
  161. ACETAMINOPHEN\CAFFEINE\PROPYPHENAZONE [Suspect]
     Active Substance: ACETAMINOPHEN\CAFFEINE\PROPYPHENAZONE
     Dosage: 30 GTT, TID (30 TROPFEN, 1-1-1-0) (ALSO REPORTED AS 90 GTT, QD)
     Route: 048
  162. URSODIOL [Suspect]
     Active Substance: URSODIOL
     Indication: Product used for unknown indication
     Dosage: 500 MG, Q12H
     Route: 048
  163. URSODIOL [Suspect]
     Active Substance: URSODIOL
     Dosage: 500 MG,BID
     Route: 048
  164. URSODIOL [Suspect]
     Active Substance: URSODIOL
     Dosage: 1000 MG, BID
     Route: 048
  165. URSODIOL [Suspect]
     Active Substance: URSODIOL
     Dosage: 1000 MILLIGRAM, Q12H (500 MG, BID)
     Route: 048
  166. URSODIOL [Suspect]
     Active Substance: URSODIOL
     Dosage: UNK
     Route: 048
  167. PANTOPRAZOLE SODIUM [Suspect]
     Active Substance: PANTOPRAZOLE SODIUM
     Indication: Product used for unknown indication
     Dosage: (40 MILLIGRAM(S)) IN 1 DAY
     Route: 048
  168. PANTOPRAZOLE SODIUM [Suspect]
     Active Substance: PANTOPRAZOLE SODIUM
     Dosage: 40 MG, QD
     Route: 048
  169. PANTOPRAZOLE SODIUM [Suspect]
     Active Substance: PANTOPRAZOLE SODIUM
     Dosage: 200 MG, BID||QD
     Route: 048
  170. PANTOPRAZOLE SODIUM [Suspect]
     Active Substance: PANTOPRAZOLE SODIUM
     Dosage: 40.0 MILLIGRAM(S) (40 MILLIGRAM(S)
     Route: 048
  171. PANTOPRAZOLE SODIUM [Suspect]
     Active Substance: PANTOPRAZOLE SODIUM
     Dosage: 40 MG, QD (1-0-0-0)||QD
     Route: 048
  172. MAGNESIUM [Suspect]
     Active Substance: MAGNESIUM
     Indication: Product used for unknown indication
     Dosage: 4.0 DOSAGE FORM (2 DOSAGE FORM),1 IN 12 HOUR
     Route: 048
  173. MAGNESIUM [Suspect]
     Active Substance: MAGNESIUM
     Dosage: 2 DOSAGE FORM, BID
     Route: 048
  174. MAGNESIUM [Suspect]
     Active Substance: MAGNESIUM
     Dosage: 2 DF, QD
     Route: 048
  175. MAGNESIUM [Suspect]
     Active Substance: MAGNESIUM
     Dosage: UNK, UNK, BID
     Route: 048
  176. MAGNESIUM [Suspect]
     Active Substance: MAGNESIUM
     Dosage: 1 DOSAGE FORM, QD
     Route: 048
  177. MAGNESIUM [Suspect]
     Active Substance: MAGNESIUM
     Dosage: UNK, UNK, BID
     Route: 048
  178. MAGNESIUM [Suspect]
     Active Substance: MAGNESIUM
     Dosage: 1 DOSAGE FORM, QD
     Route: 048
  179. MAGNESIUM [Suspect]
     Active Substance: MAGNESIUM
     Dosage: 2 DOSAGE FORM, BID
     Route: 048
  180. MAGNESIUM [Suspect]
     Active Substance: MAGNESIUM
     Dosage: 2 DOSAGE FORM, BID
     Route: 048
  181. MAGNESIUM [Suspect]
     Active Substance: MAGNESIUM
     Dosage: 2 DF, BID
     Route: 048
  182. SPIRONOLACTONE [Suspect]
     Active Substance: SPIRONOLACTONE
     Indication: Product used for unknown indication
     Dosage: 2 DF, QD
     Route: 048
  183. SPIRONOLACTONE [Suspect]
     Active Substance: SPIRONOLACTONE
     Dosage: 100 MG, QD
     Route: 048
  184. SPIRONOLACTONE [Suspect]
     Active Substance: SPIRONOLACTONE
     Dosage: (100 MILLIGRAM(S)) IN 1 DAY
     Route: 048
  185. SPIRONOLACTONE [Suspect]
     Active Substance: SPIRONOLACTONE
     Dosage: 2.0 DOSAGE FORM (2 DOSAGE FORM),1 IN 1 DAY
     Route: 048
  186. SPIRONOLACTONE [Suspect]
     Active Substance: SPIRONOLACTONE
     Dosage: 400.0 MILLIGRAM(S) (200 MILLIGRAM(S)),1 IN 12 HOUR
  187. SPIRONOLACTONE [Suspect]
     Active Substance: SPIRONOLACTONE
     Dosage: (200 MILLIGRAM(S)) IN 12 HOUR
     Route: 048
  188. SPIRONOLACTONE [Suspect]
     Active Substance: SPIRONOLACTONE
     Dosage: 100.0 MILLIGRAM(S) (100 MILLIGRAM(S)),1 IN 1 DAY
     Route: 048
  189. SPIRONOLACTONE [Suspect]
     Active Substance: SPIRONOLACTONE
     Dosage: (200 MILLIGRAM(S)) IN 12 HOUR
     Route: 048
  190. SPIRONOLACTONE [Suspect]
     Active Substance: SPIRONOLACTONE
     Dosage: (100 MILLIGRAM(S)) IN 1 DAY
     Route: 048
  191. SPIRONOLACTONE [Suspect]
     Active Substance: SPIRONOLACTONE
     Dosage: (100 MILLIGRAM(S)) IN 1 DAY
     Route: 048
  192. SPIRONOLACTONE [Suspect]
     Active Substance: SPIRONOLACTONE
     Dosage: 200.0 MILLIGRAM(S) (100 MILLIGRAM(S)),1 IN 12 HOUR
     Route: 048
  193. SPIRONOLACTONE [Suspect]
     Active Substance: SPIRONOLACTONE
     Dosage: 100 MG, BID
     Route: 048
  194. SPIRONOLACTONE [Suspect]
     Active Substance: SPIRONOLACTONE
     Dosage: (100 MILLIGRAM(S)) IN 12 HOUR
     Route: 048
  195. SPIRONOLACTONE [Suspect]
     Active Substance: SPIRONOLACTONE
     Dosage: 200 MG, BID
     Route: 048
  196. SPIRONOLACTONE [Suspect]
     Active Substance: SPIRONOLACTONE
     Dosage: 200 MG, BID
     Route: 048
  197. SPIRONOLACTONE [Suspect]
     Active Substance: SPIRONOLACTONE
     Dosage: (100 MILLIGRAM(S)) IN 1 DAY
     Route: 048
  198. SPIRONOLACTONE [Suspect]
     Active Substance: SPIRONOLACTONE
     Dosage: 100 MG, BID
     Route: 048
  199. SPIRONOLACTONE [Suspect]
     Active Substance: SPIRONOLACTONE
     Dosage: 200 MG, BID
     Route: 048
  200. SPIRONOLACTONE [Suspect]
     Active Substance: SPIRONOLACTONE
     Dosage: 100 MG, BID (2-0-0-0) (ALSO REPORTED AS 200 MG, QD)
     Route: 048
  201. SPIRONOLACTONE [Suspect]
     Active Substance: SPIRONOLACTONE
     Dosage: 200 MILLIGRAM(S)) IN 1 DAY
     Route: 048
  202. SPIRONOLACTONE [Suspect]
     Active Substance: SPIRONOLACTONE
     Dosage: 200 MILLIGRAM(S)) IN 12 HOUR
     Route: 048
  203. SPIRONOLACTONE [Suspect]
     Active Substance: SPIRONOLACTONE
     Dosage: (200 MILLIGRAM(S)) IN 12 HOUR
     Route: 048
  204. SPIRONOLACTONE [Suspect]
     Active Substance: SPIRONOLACTONE
     Dosage: (200 MILLIGRAM(S)) IN 12 HOUR
     Route: 048
  205. SPIRONOLACTONE [Suspect]
     Active Substance: SPIRONOLACTONE
     Dosage: (200 MILLIGRAM(S)) IN 12 HOUR
     Route: 048
  206. SPIRONOLACTONE [Suspect]
     Active Substance: SPIRONOLACTONE
     Dosage: 2 DOSAGE FORM (DF), QD
     Route: 048
  207. AZATHIOPRINE [Suspect]
     Active Substance: AZATHIOPRINE
     Indication: Product used for unknown indication
     Dosage: 50 MG, QD
     Route: 048
  208. AZATHIOPRINE [Suspect]
     Active Substance: AZATHIOPRINE
     Dosage: UNK
     Route: 048
  209. NOVALGIN (METAMIZOLE SODIUM) [Suspect]
     Active Substance: METAMIZOLE SODIUM
     Indication: Product used for unknown indication
     Dosage: (30 DROP(S)) IN 8 HOUR
     Route: 048
  210. NOVALGIN (METAMIZOLE SODIUM) [Suspect]
     Active Substance: METAMIZOLE SODIUM
     Dosage: (30 DROP(S)) IN 8 HOUR
     Route: 048
  211. NOVALGIN (METAMIZOLE SODIUM) [Suspect]
     Active Substance: METAMIZOLE SODIUM
     Dosage: 30 [DRP] (DROP (1/12 MILLILITER)), 30 GTT DROPS, Q8H
     Route: 048
  212. FLUTICASONE PROPIONATE\SALMETEROL XINAFOATE [Suspect]
     Active Substance: FLUTICASONE PROPIONATE\SALMETEROL XINAFOATE
     Indication: Product used for unknown indication
     Dosage: 1.0 DOSAGE FORM (1 DOSAGE FORM),1 IN 1 DAY
     Route: 055
  213. FLUTICASONE PROPIONATE\SALMETEROL XINAFOATE [Suspect]
     Active Substance: FLUTICASONE PROPIONATE\SALMETEROL XINAFOATE
     Dosage: 2.0 DOSAGE FORM (2 DOSAGE FORM),1 IN 1 DAY
     Route: 055
  214. FLUTICASONE PROPIONATE\SALMETEROL XINAFOATE [Suspect]
     Active Substance: FLUTICASONE PROPIONATE\SALMETEROL XINAFOATE
     Dosage: UNK
  215. PENTAZOCINE HYDROCHLORIDE [Suspect]
     Active Substance: PENTAZOCINE HYDROCHLORIDE
     Indication: Product used for unknown indication
     Dosage: (30 DROP(S)) IN 8 HOUR
     Route: 048
  216. PENTAZOCINE HYDROCHLORIDE [Suspect]
     Active Substance: PENTAZOCINE HYDROCHLORIDE
     Dosage: 1 UNK
     Route: 048
  217. PENTAZOCINE HYDROCHLORIDE [Suspect]
     Active Substance: PENTAZOCINE HYDROCHLORIDE
     Dosage: 90 DOSAGE FORM) IN 1 DAY
     Route: 048
  218. PENTAZOCINE HYDROCHLORIDE [Suspect]
     Active Substance: PENTAZOCINE HYDROCHLORIDE
     Dosage: (1 DOSAGE FORM) IN 1 DAY
     Route: 048
  219. PENTAZOCINE HYDROCHLORIDE [Suspect]
     Active Substance: PENTAZOCINE HYDROCHLORIDE
     Dosage: 1 IN 8 HOUR
     Route: 048
  220. PENTAZOCINE HYDROCHLORIDE [Suspect]
     Active Substance: PENTAZOCINE HYDROCHLORIDE
     Dosage: 30 GTT, TID
     Route: 048
  221. PENTAZOCINE HYDROCHLORIDE [Suspect]
     Active Substance: PENTAZOCINE HYDROCHLORIDE
     Dosage: 90 DF, QD
     Route: 048
  222. PENTAZOCINE HYDROCHLORIDE [Suspect]
     Active Substance: PENTAZOCINE HYDROCHLORIDE
     Dosage: 90.0 DOSAGE FORM (90 DOSAGE FORM),1 IN 1 DAY
     Route: 048
  223. PENTAZOCINE HYDROCHLORIDE [Suspect]
     Active Substance: PENTAZOCINE HYDROCHLORIDE
     Dosage: 1 DF, QD
     Route: 048
  224. PENTAZOCINE HYDROCHLORIDE [Suspect]
     Active Substance: PENTAZOCINE HYDROCHLORIDE
     Dosage: 1.0 DOSAGE FORM (1 DOSAGE FORM),1 IN 1 DAY
     Route: 048
  225. PENTAZOCINE HYDROCHLORIDE [Suspect]
     Active Substance: PENTAZOCINE HYDROCHLORIDE
     Dosage: UNK, QD 90 DOSAGE FORM) IN 1 DAY
  226. BENSERAZIDE\LEVODOPA [Suspect]
     Active Substance: BENSERAZIDE\LEVODOPA
     Indication: Product used for unknown indication
     Dosage: 1 DF, QD
     Route: 055
  227. BENSERAZIDE\LEVODOPA [Suspect]
     Active Substance: BENSERAZIDE\LEVODOPA
     Dosage: 1 DOSAGE FORM) IN 1 DAY
     Route: 055
  228. BENSERAZIDE\LEVODOPA [Suspect]
     Active Substance: BENSERAZIDE\LEVODOPA
     Dosage: 1.0 DOSAGE FORM (1 DOSAGE FORM),1 IN 1 DAY
     Route: 055
  229. BENSERAZIDE\LEVODOPA [Suspect]
     Active Substance: BENSERAZIDE\LEVODOPA
     Dosage: 200.0 MILLIGRAM(S) (100 MILLIGRAM(S)),1 IN 12 HOUR
     Route: 048
  230. BENSERAZIDE\LEVODOPA [Suspect]
     Active Substance: BENSERAZIDE\LEVODOPA
     Dosage: 100 MG, QD
     Route: 048
  231. BENSERAZIDE\LEVODOPA [Suspect]
     Active Substance: BENSERAZIDE\LEVODOPA
     Dosage: 100.0 MILLIGRAM(S) (100 MILLIGRAM(S)),1 IN 1 DAY
     Route: 048
  232. BENSERAZIDE\LEVODOPA [Suspect]
     Active Substance: BENSERAZIDE\LEVODOPA
     Dosage: (100 MILLIGRAM(S)) IN 1 DAY
     Route: 048
  233. BENSERAZIDE\LEVODOPA [Suspect]
     Active Substance: BENSERAZIDE\LEVODOPA
     Dosage: 100 MG, BID
     Route: 048
  234. BENSERAZIDE\LEVODOPA [Suspect]
     Active Substance: BENSERAZIDE\LEVODOPA
     Dosage: 1 DOSAGE FORM, QD (1 DF, QD)
     Route: 055
  235. BENSERAZIDE\LEVODOPA [Suspect]
     Active Substance: BENSERAZIDE\LEVODOPA
     Dosage: 100 MILLIGRAM, Q12H (100MG, BID)
     Route: 048
  236. BENSERAZIDE\LEVODOPA [Suspect]
     Active Substance: BENSERAZIDE\LEVODOPA
     Dosage: 100 MILLIGRAM, QD (100 MG, QD)
     Route: 048
  237. BENSERAZIDE\LEVODOPA [Suspect]
     Active Substance: BENSERAZIDE\LEVODOPA
     Dosage: UNK
  238. POTASSIUM CHLORIDE [Suspect]
     Active Substance: POTASSIUM CHLORIDE
     Indication: Product used for unknown indication
     Dosage: 100 MG, QD
     Route: 048
  239. POTASSIUM CHLORIDE [Suspect]
     Active Substance: POTASSIUM CHLORIDE
     Dosage: 100 MILLIGRAM, QD
     Route: 048
  240. POTASSIUM CHLORIDE [Suspect]
     Active Substance: POTASSIUM CHLORIDE
     Dosage: 100 MG, QD; (100 MILLIGRAM(S)) IN 1 DAY
     Route: 048
  241. AZATHIOPRINE [Suspect]
     Active Substance: AZATHIOPRINE
     Indication: Product used for unknown indication
     Dosage: (50 MILLIGRAM(S)) IN 1 DAY
  242. AZATHIOPRINE [Suspect]
     Active Substance: AZATHIOPRINE
     Dosage: 50.0 MILLIGRAM(S) (50 MILLIGRAM(S)),1 IN 1 DAY
     Route: 048
  243. AZATHIOPRINE [Suspect]
     Active Substance: AZATHIOPRINE
     Dosage: (50 MILLIGRAM(S)) IN 1 DAY
     Route: 048
  244. AZATHIOPRINE [Suspect]
     Active Substance: AZATHIOPRINE
     Dosage: (50 MILLIGRAM(S)) IN 1 DAY
     Route: 048
  245. AZATHIOPRINE [Suspect]
     Active Substance: AZATHIOPRINE
     Dosage: 50 MG, QD
     Route: 048
  246. AZATHIOPRINE [Suspect]
     Active Substance: AZATHIOPRINE
     Dosage: 50 MG,UNK
     Route: 048
  247. AZATHIOPRINE [Suspect]
     Active Substance: AZATHIOPRINE
     Dosage: 50 MG,QD
     Route: 048
  248. AZATHIOPRINE [Suspect]
     Active Substance: AZATHIOPRINE
     Dosage: 50 MG,QD
     Route: 048
  249. AZATHIOPRINE [Suspect]
     Active Substance: AZATHIOPRINE
     Dosage: 50 MILLIGRAM
     Route: 048
  250. AZATHIOPRINE [Suspect]
     Active Substance: AZATHIOPRINE
     Dosage: 50 MG, QD
     Route: 048
  251. CITRIC ACID MONOHYDRATE\POTASSIUM BICARBONATE\POTASSIUM CITRATE [Suspect]
     Active Substance: CITRIC ACID MONOHYDRATE\POTASSIUM BICARBONATE\POTASSIUM CITRATE
     Indication: Product used for unknown indication
     Dosage: UNK
     Route: 048
  252. CITRIC ACID MONOHYDRATE\POTASSIUM BICARBONATE\POTASSIUM CITRATE [Suspect]
     Active Substance: CITRIC ACID MONOHYDRATE\POTASSIUM BICARBONATE\POTASSIUM CITRATE
     Dosage: 100 MG, QD
     Route: 048
  253. CITRIC ACID MONOHYDRATE\POTASSIUM BICARBONATE\POTASSIUM CITRATE [Suspect]
     Active Substance: CITRIC ACID MONOHYDRATE\POTASSIUM BICARBONATE\POTASSIUM CITRATE
     Dosage: 100 MG, QD (1-0-0-0)
     Route: 048
  254. CITRIC ACID MONOHYDRATE\POTASSIUM BICARBONATE\POTASSIUM CITRATE [Suspect]
     Active Substance: CITRIC ACID MONOHYDRATE\POTASSIUM BICARBONATE\POTASSIUM CITRATE
     Dosage: 100 MG, QD (1-0-0-0)
     Route: 048
  255. CITRIC ACID MONOHYDRATE\POTASSIUM BICARBONATE\POTASSIUM CITRATE [Suspect]
     Active Substance: CITRIC ACID MONOHYDRATE\POTASSIUM BICARBONATE\POTASSIUM CITRATE
     Dosage: 100 MG, QD (1-0-0-0)
     Route: 048
  256. CITRIC ACID MONOHYDRATE\POTASSIUM BICARBONATE\POTASSIUM CITRATE [Suspect]
     Active Substance: CITRIC ACID MONOHYDRATE\POTASSIUM BICARBONATE\POTASSIUM CITRATE
     Dosage: 100 MG, QD (1-0-0-0)
     Route: 048
  257. CITRIC ACID MONOHYDRATE\POTASSIUM BICARBONATE\POTASSIUM CITRATE [Suspect]
     Active Substance: CITRIC ACID MONOHYDRATE\POTASSIUM BICARBONATE\POTASSIUM CITRATE
     Dosage: UNK
     Route: 048
  258. CITRIC ACID MONOHYDRATE\POTASSIUM BICARBONATE\POTASSIUM CITRATE [Suspect]
     Active Substance: CITRIC ACID MONOHYDRATE\POTASSIUM BICARBONATE\POTASSIUM CITRATE
     Dosage: UNK
     Route: 048
  259. CITRIC ACID MONOHYDRATE\POTASSIUM BICARBONATE\POTASSIUM CITRATE [Suspect]
     Active Substance: CITRIC ACID MONOHYDRATE\POTASSIUM BICARBONATE\POTASSIUM CITRATE
     Dosage: UNK
  260. PANTOZOL [Suspect]
     Active Substance: PANTOPRAZOLE SODIUM
     Indication: Product used for unknown indication
     Dosage: 40 MG, QD (1-0-0-0)
     Route: 048
  261. PANTOZOL [Suspect]
     Active Substance: PANTOPRAZOLE SODIUM
     Dosage: 40.0 MILLIGRAM(S) (40 MILLIGRAM(S)),1 IN 1 DAY
     Route: 048
  262. PANTOZOL [Suspect]
     Active Substance: PANTOPRAZOLE SODIUM
     Dosage: 40 MG, QD (1-0-0-0)
     Route: 048
  263. PANTOZOL [Suspect]
     Active Substance: PANTOPRAZOLE SODIUM
     Dosage: 40 MG, QD (1-0-0-0)
     Route: 048
  264. PANTOZOL [Suspect]
     Active Substance: PANTOPRAZOLE SODIUM
     Dosage: 40 MG, QD (1-0-0-0)
     Route: 048
  265. PANTOZOL [Suspect]
     Active Substance: PANTOPRAZOLE SODIUM
     Dosage: UNK
     Route: 048
  266. CHOLECALCIFEROL [Suspect]
     Active Substance: CHOLECALCIFEROL
     Indication: Product used for unknown indication
     Dosage: 1 DF, QD
     Route: 048
  267. CHOLECALCIFEROL [Suspect]
     Active Substance: CHOLECALCIFEROL
     Dosage: 100 IU, QD (1-0-0-0)
     Route: 048
  268. CHOLECALCIFEROL [Suspect]
     Active Substance: CHOLECALCIFEROL
     Dosage: 100 UNK, QD
     Route: 048
  269. CHOLECALCIFEROL [Suspect]
     Active Substance: CHOLECALCIFEROL
     Dosage: 100 IU, QD (1-0-0-0)
     Route: 048
  270. CHOLECALCIFEROL [Suspect]
     Active Substance: CHOLECALCIFEROL
     Dosage: 100 IU, QD (1-0-0-0)
     Route: 048
  271. CHOLECALCIFEROL [Suspect]
     Active Substance: CHOLECALCIFEROL
     Dosage: 1 DF, QD
     Route: 048
  272. CHOLECALCIFEROL [Suspect]
     Active Substance: CHOLECALCIFEROL
     Dosage: 100 IU, QD (1-0-0-0)
     Route: 048
  273. CHOLECALCIFEROL [Suspect]
     Active Substance: CHOLECALCIFEROL
     Dosage: 1 DF, QD
     Route: 048
  274. SPIRIVA [Suspect]
     Active Substance: TIOTROPIUM BROMIDE MONOHYDRATE
     Indication: Product used for unknown indication
     Dosage: 18 UG, BID (1-0-1-0)
     Route: 055
  275. SPIRIVA [Suspect]
     Active Substance: TIOTROPIUM BROMIDE MONOHYDRATE
     Dosage: 18 UG, BID
     Route: 055
  276. SPIRIVA [Suspect]
     Active Substance: TIOTROPIUM BROMIDE MONOHYDRATE
     Dosage: 36 MICROGRAM, QD
     Route: 055
  277. SPIRIVA [Suspect]
     Active Substance: TIOTROPIUM BROMIDE MONOHYDRATE
     Dosage: 2 DOSAGE FORM, QD
     Route: 055
  278. FENTANYL [Suspect]
     Active Substance: FENTANYL
     Indication: Product used for unknown indication
     Dosage: 50 UG,QD
     Route: 048
  279. BENSERAZIDE\LEVODOPA [Suspect]
     Active Substance: BENSERAZIDE\LEVODOPA
     Indication: Product used for unknown indication
     Dosage: 100 MG, QD (1-0-2.5-0)
     Route: 048
  280. BENSERAZIDE\LEVODOPA [Suspect]
     Active Substance: BENSERAZIDE\LEVODOPA
     Dosage: 100 MG BID
     Route: 048
  281. BENSERAZIDE\LEVODOPA [Suspect]
     Active Substance: BENSERAZIDE\LEVODOPA
     Dosage: 1 DF, QD
     Route: 055
  282. BENSERAZIDE\LEVODOPA [Suspect]
     Active Substance: BENSERAZIDE\LEVODOPA
     Dosage: 1 DF, QD
     Route: 055
  283. BENSERAZIDE\LEVODOPA [Suspect]
     Active Substance: BENSERAZIDE\LEVODOPA
     Dosage: 100 MG, QD
     Route: 048
  284. BENSERAZIDE\LEVODOPA [Suspect]
     Active Substance: BENSERAZIDE\LEVODOPA
     Dosage: 100 MG, QD
     Route: 048
  285. BENSERAZIDE\LEVODOPA [Suspect]
     Active Substance: BENSERAZIDE\LEVODOPA
     Dosage: 100 MG, QD
     Route: 048
  286. ESIDRIX [Suspect]
     Active Substance: HYDROCHLOROTHIAZIDE
     Indication: Product used for unknown indication
     Dosage: 25 MG, QD (1-0-0-0)
     Route: 048
  287. URSODIOL [Suspect]
     Active Substance: URSODIOL
     Indication: Product used for unknown indication
     Dosage: 500 MG, BID (1-0-1-0)
     Route: 048
  288. URSODIOL [Suspect]
     Active Substance: URSODIOL
     Dosage: 500 MG, BID (1-0-1-0)
     Route: 048
  289. URSODIOL [Suspect]
     Active Substance: URSODIOL
     Dosage: 1000 MG (500 MG, BID)
     Route: 048
  290. URSODIOL [Suspect]
     Active Substance: URSODIOL
     Dosage: 500 MG, BID (1-0-1-0)
     Route: 048
  291. URSODIOL [Suspect]
     Active Substance: URSODIOL
     Dosage: 1000 MG (500 MG, BID)
     Route: 048
  292. URSODIOL [Suspect]
     Active Substance: URSODIOL
     Dosage: 1000 MG (500 MG, BID)
     Route: 048
  293. URSODIOL [Suspect]
     Active Substance: URSODIOL
     Dosage: 500 MG, BID (1-0-1-0)
     Route: 048
  294. URSODIOL [Suspect]
     Active Substance: URSODIOL
     Dosage: 500 MG, BID (1-0-1-0)
     Route: 048
  295. URSODIOL [Suspect]
     Active Substance: URSODIOL
     Dosage: 500 MG, BID (1-0-1-0)
     Route: 048
  296. URSODIOL [Suspect]
     Active Substance: URSODIOL
     Dosage: 1000 MG (500 MG, BID)
     Route: 048
  297. URSODIOL [Suspect]
     Active Substance: URSODIOL
     Dosage: UNK
     Route: 048
  298. MAGNESIUM CITRATE\MAGNESIUM OXIDE\POTASSIUM CITRATE\PYRIDOXINE HYDROCH [Suspect]
     Active Substance: MAGNESIUM CITRATE\MAGNESIUM OXIDE\POTASSIUM CITRATE\PYRIDOXINE HYDROCHLORIDE
     Indication: Product used for unknown indication
     Dosage: 2 DF, QD
     Route: 048
  299. MAGNESIUM CITRATE\MAGNESIUM OXIDE\POTASSIUM CITRATE\PYRIDOXINE HYDROCH [Suspect]
     Active Substance: MAGNESIUM CITRATE\MAGNESIUM OXIDE\POTASSIUM CITRATE\PYRIDOXINE HYDROCHLORIDE
     Dosage: 1 DF, QD
     Route: 048
  300. MAGNESIUM CITRATE\MAGNESIUM OXIDE\POTASSIUM CITRATE\PYRIDOXINE HYDROCH [Suspect]
     Active Substance: MAGNESIUM CITRATE\MAGNESIUM OXIDE\POTASSIUM CITRATE\PYRIDOXINE HYDROCHLORIDE
     Dosage: UNK UNK, BID
     Route: 048
  301. MAGNESIUM CITRATE\MAGNESIUM OXIDE\POTASSIUM CITRATE\PYRIDOXINE HYDROCH [Suspect]
     Active Substance: MAGNESIUM CITRATE\MAGNESIUM OXIDE\POTASSIUM CITRATE\PYRIDOXINE HYDROCHLORIDE
     Dosage: 2 DF, QD
     Route: 048
  302. MAGNESIUM CITRATE\MAGNESIUM OXIDE\POTASSIUM CITRATE\PYRIDOXINE HYDROCH [Suspect]
     Active Substance: MAGNESIUM CITRATE\MAGNESIUM OXIDE\POTASSIUM CITRATE\PYRIDOXINE HYDROCHLORIDE
     Dosage: 2 DF, QD
     Route: 048
  303. MAGNESIUM CITRATE\MAGNESIUM OXIDE\POTASSIUM CITRATE\PYRIDOXINE HYDROCH [Suspect]
     Active Substance: MAGNESIUM CITRATE\MAGNESIUM OXIDE\POTASSIUM CITRATE\PYRIDOXINE HYDROCHLORIDE
     Dosage: 1 DOSAGE FORM, QD (1 DF, QD )
     Route: 048
  304. MAGNESIUM CITRATE\MAGNESIUM OXIDE\POTASSIUM CITRATE\PYRIDOXINE HYDROCH [Suspect]
     Active Substance: MAGNESIUM CITRATE\MAGNESIUM OXIDE\POTASSIUM CITRATE\PYRIDOXINE HYDROCHLORIDE
     Dosage: 2 DOSAGE FORM, QD (2 DF, QD )
     Route: 048
  305. MAGNESIUM CITRATE\MAGNESIUM OXIDE\POTASSIUM CITRATE\PYRIDOXINE HYDROCH [Suspect]
     Active Substance: MAGNESIUM CITRATE\MAGNESIUM OXIDE\POTASSIUM CITRATE\PYRIDOXINE HYDROCHLORIDE
     Dosage: 2 DOSAGE FORM, QD (2 DF, QD )
     Route: 048
  306. MAGNESIUM CITRATE\MAGNESIUM OXIDE\POTASSIUM CITRATE\PYRIDOXINE HYDROCH [Suspect]
     Active Substance: MAGNESIUM CITRATE\MAGNESIUM OXIDE\POTASSIUM CITRATE\PYRIDOXINE HYDROCHLORIDE
     Dosage: 2 DOSAGE FORM, QD (2 DF, QD )
     Route: 048
  307. MAGNESIUM CITRATE\MAGNESIUM OXIDE\POTASSIUM CITRATE\PYRIDOXINE HYDROCH [Suspect]
     Active Substance: MAGNESIUM CITRATE\MAGNESIUM OXIDE\POTASSIUM CITRATE\PYRIDOXINE HYDROCHLORIDE
     Dosage: 2 DOSAGE FORM, QD (2 DF, QD )
     Route: 048
  308. MAGNESIUM CITRATE\MAGNESIUM OXIDE\POTASSIUM CITRATE\PYRIDOXINE HYDROCH [Suspect]
     Active Substance: MAGNESIUM CITRATE\MAGNESIUM OXIDE\POTASSIUM CITRATE\PYRIDOXINE HYDROCHLORIDE
     Dosage: UNK UNK, BID
     Route: 048
  309. MAGNESIUM CITRATE\MAGNESIUM OXIDE\POTASSIUM CITRATE\PYRIDOXINE HYDROCH [Suspect]
     Active Substance: MAGNESIUM CITRATE\MAGNESIUM OXIDE\POTASSIUM CITRATE\PYRIDOXINE HYDROCHLORIDE
     Dosage: 2 UNK, QD
     Route: 048
  310. MAGNESIUM CITRATE\MAGNESIUM OXIDE\POTASSIUM CITRATE\PYRIDOXINE HYDROCH [Suspect]
     Active Substance: MAGNESIUM CITRATE\MAGNESIUM OXIDE\POTASSIUM CITRATE\PYRIDOXINE HYDROCHLORIDE
     Dosage: 2 DOSAGE FORM, QD (2 DF, QD )
     Route: 048
  311. MAGNESIUM CITRATE\MAGNESIUM OXIDE\POTASSIUM CITRATE\PYRIDOXINE HYDROCH [Suspect]
     Active Substance: MAGNESIUM CITRATE\MAGNESIUM OXIDE\POTASSIUM CITRATE\PYRIDOXINE HYDROCHLORIDE
     Dosage: 2 DOSAGE FORM, QD (2 DF, QD )
     Route: 048
  312. MAGNESIUM CITRATE\MAGNESIUM OXIDE\POTASSIUM CITRATE\PYRIDOXINE HYDROCH [Suspect]
     Active Substance: MAGNESIUM CITRATE\MAGNESIUM OXIDE\POTASSIUM CITRATE\PYRIDOXINE HYDROCHLORIDE
     Dosage: 2 DOSAGE FORM, QD (2 DF, QD )
     Route: 048
  313. MAGNESIUM CITRATE\MAGNESIUM OXIDE\POTASSIUM CITRATE\PYRIDOXINE HYDROCH [Suspect]
     Active Substance: MAGNESIUM CITRATE\MAGNESIUM OXIDE\POTASSIUM CITRATE\PYRIDOXINE HYDROCHLORIDE
     Dosage: 1 DOSAGE FORM, QD (1 DF, QD )
     Route: 048
  314. MAGNESIUM CITRATE\MAGNESIUM OXIDE\POTASSIUM CITRATE\PYRIDOXINE HYDROCH [Suspect]
     Active Substance: MAGNESIUM CITRATE\MAGNESIUM OXIDE\POTASSIUM CITRATE\PYRIDOXINE HYDROCHLORIDE
     Dosage: 1 DOSAGE FORM, QD (1 DF, QD )
     Route: 048
  315. ALUMINUM HYDROXIDE\MAGNESIUM HYDROXIDE [Suspect]
     Active Substance: ALUMINUM HYDROXIDE\MAGNESIUM HYDROXIDE
     Indication: Product used for unknown indication
     Dosage: 200 DOSAGE FORM, QD
     Route: 048
  316. FLUTICASONE PROPIONATE\SALMETEROL XINAFOATE [Suspect]
     Active Substance: FLUTICASONE PROPIONATE\SALMETEROL XINAFOATE
     Indication: Product used for unknown indication
     Dosage: 2 DF, QD
     Route: 055
  317. FLUTICASONE PROPIONATE\SALMETEROL XINAFOATE [Suspect]
     Active Substance: FLUTICASONE PROPIONATE\SALMETEROL XINAFOATE
     Dosage: 1 DF, QD
     Route: 055
  318. AMBROXOL [Suspect]
     Active Substance: AMBROXOL
     Indication: Product used for unknown indication
     Dosage: 30 DROP, PRN
     Route: 048
  319. MAGNESIUM [Suspect]
     Active Substance: MAGNESIUM
     Indication: Product used for unknown indication
     Dosage: 2 DF, QD
     Route: 048
  320. MAGNESIUM [Suspect]
     Active Substance: MAGNESIUM
     Dosage: 2 DF, QD
     Route: 048
  321. MAGNESIUM [Suspect]
     Active Substance: MAGNESIUM
     Dosage: UNK UNK, BID
     Route: 048
  322. MAGNESIUM [Suspect]
     Active Substance: MAGNESIUM
     Dosage: 2 DF, QD
     Route: 048
  323. MAGNESIUM [Suspect]
     Active Substance: MAGNESIUM
     Dosage: 2 DF, QD
     Route: 048
  324. MAGNESIUM [Suspect]
     Active Substance: MAGNESIUM
     Dosage: 1 DF, QD
     Route: 048
  325. MAGNESIUM [Suspect]
     Active Substance: MAGNESIUM
     Dosage: UNK
     Route: 048
  326. PANTOPRAZOLE SODIUM [Suspect]
     Active Substance: PANTOPRAZOLE SODIUM
     Indication: Product used for unknown indication
     Dosage: (40 MILLIGRAM(S)) IN 1 DAY
     Route: 048
  327. PANTOPRAZOLE SODIUM [Suspect]
     Active Substance: PANTOPRAZOLE SODIUM
     Dosage: (40 MILLIGRAM(S)) IN 1 DAY
     Route: 048
  328. PANTOPRAZOLE SODIUM [Suspect]
     Active Substance: PANTOPRAZOLE SODIUM
     Dosage: (40 MILLIGRAM(S)) IN 1 DAY
     Route: 048
  329. PANTOPRAZOLE SODIUM [Suspect]
     Active Substance: PANTOPRAZOLE SODIUM
     Dosage: (40 MILLIGRAM(S)) IN 1 DAY
     Route: 048
  330. PANTOPRAZOLE SODIUM [Suspect]
     Active Substance: PANTOPRAZOLE SODIUM
     Dosage: UNK
     Route: 048
  331. MAGNESIUM [Suspect]
     Active Substance: MAGNESIUM
     Indication: Product used for unknown indication
     Dosage: 2 DF, QD
  332. SIMVASTATIN [Concomitant]
     Active Substance: SIMVASTATIN
     Indication: Product used for unknown indication
     Dosage: 40 MG, QD
     Route: 048
  333. FUROSEMIDE [Concomitant]
     Active Substance: FUROSEMIDE
     Indication: Product used for unknown indication
     Dosage: 160 MG, QD
     Route: 048
  334. BENSERAZIDE HYDROCHLORIDE [Concomitant]
     Active Substance: BENSERAZIDE HYDROCHLORIDE
     Indication: Product used for unknown indication
     Dosage: 100 MG, BID
     Route: 048
  335. LACTULOSE [Concomitant]
     Active Substance: LACTULOSE
     Indication: Product used for unknown indication
     Dosage: UNK
  336. AMBROXOL HYDROCHLORIDE [Concomitant]
     Active Substance: AMBROXOL HYDROCHLORIDE
     Indication: Product used for unknown indication
     Dosage: 30 DF, PRN
     Route: 048

REACTIONS (3)
  - General physical health deterioration [Unknown]
  - Product prescribing error [Unknown]
  - Drug interaction [Unknown]

NARRATIVE: CASE EVENT DATE: 20150916
